FAERS Safety Report 15674777 (Version 2)
Quarter: 2018Q4

REPORT INFORMATION
  Report Type: Report from Study
  Country: US (occurrence: US)
  Receive Date: 20181130
  Receipt Date: 20181203
  Transmission Date: 20190205
  Serious: Yes (Hospitalization, Other)
  Sender: FDA-Public Use
  Company Number: US-ASTRAZENECA-2018SF05577

PATIENT
  Age: 81 Year
  Sex: Female
  Weight: 114 kg

DRUGS (8)
  1. RESTASIS [Concomitant]
     Active Substance: CYCLOSPORINE
  2. GILOTRIF [Concomitant]
     Active Substance: AFATINIB
     Dates: start: 201807
  3. XARELTO [Concomitant]
     Active Substance: RIVAROXABAN
  4. LOPERAMIDE [Concomitant]
     Active Substance: LOPERAMIDE
  5. SUMATRIPTAN SUCCINATE. [Concomitant]
     Active Substance: SUMATRIPTAN SUCCINATE
  6. TAGRISSO [Suspect]
     Active Substance: OSIMERTINIB
     Indication: LUNG NEOPLASM MALIGNANT
     Route: 048
     Dates: start: 20180724
  7. AMLODIPINE BESYLATE. [Concomitant]
     Active Substance: AMLODIPINE BESYLATE
  8. SUMAVEL DOSEPRO [Concomitant]
     Active Substance: SUMATRIPTAN SUCCINATE

REACTIONS (9)
  - Malignant neoplasm progression [Unknown]
  - Metastases to lymph nodes [Unknown]
  - Dyspnoea [Unknown]
  - Asthenia [Unknown]
  - Loss of consciousness [Unknown]
  - Hypotension [Unknown]
  - Lung disorder [Unknown]
  - Metastases to bone [Unknown]
  - Malaise [Unknown]

NARRATIVE: CASE EVENT DATE: 201808
